FAERS Safety Report 10019070 (Version 1)
Quarter: 2014Q1

REPORT INFORMATION
  Report Type: Spontaneous
  Country: US (occurrence: None)
  Receive Date: 20140314
  Receipt Date: 20140314
  Transmission Date: 20141002
  Serious: Yes (Other)
  Sender: FDA-Public Use
  Company Number: None

PATIENT
  Age: 68 Year
  Sex: Female
  Weight: 63.5 kg

DRUGS (3)
  1. CONTROL CREAM MARIO BADESCU CFSAN [Suspect]
     Indication: DRY SKIN
     Route: 061
  2. CORTICOSTEROID [Suspect]
  3. OTHER TOPICAL PRODUCTS FROM THE SAME ^KIT^ FROM MARIO BADESCU [Concomitant]

REACTIONS (4)
  - Telangiectasia [None]
  - Dermatitis acneiform [None]
  - Rosacea [None]
  - Drug withdrawal syndrome [None]
